FAERS Safety Report 6273628-4 (Version None)
Quarter: 2009Q3

REPORT INFORMATION
  Report Type: 
  Country: None (occurrence: None)
  Receive Date: 20090720
  Receipt Date: 20090618
  Transmission Date: 20100115
  Serious: No
  Sender: FDA-Public Use
  Company Number: US-BAYER-200924351NA

PATIENT
  Age: 26 Year
  Sex: Female
  Weight: 136 kg

DRUGS (1)
  1. MIRENA [Suspect]
     Indication: DRUG USE FOR UNKNOWN INDICATION
     Dosage: CONTINUOUS DELIVERY
     Route: 015
     Dates: start: 20090605, end: 20090612

REACTIONS (3)
  - COMPLICATION OF DEVICE INSERTION [None]
  - INTRA-UTERINE CONTRACEPTIVE DEVICE EXPELLED [None]
  - VAGINAL HAEMORRHAGE [None]
